FAERS Safety Report 14190565 (Version 1)
Quarter: 2017Q4

REPORT INFORMATION
  Report Type: Spontaneous
  Country: US (occurrence: US)
  Receive Date: 20171114
  Receipt Date: 20171114
  Transmission Date: 20180321
  Serious: No
  Sender: FDA-Public Use
  Company Number: None

PATIENT
  Age: 42 Year
  Sex: Female
  Weight: 90 kg

DRUGS (2)
  1. SYNTHROID [Concomitant]
     Active Substance: LEVOTHYROXINE SODIUM
  2. LEVAQUIN [Suspect]
     Active Substance: LEVOFLOXACIN
     Indication: CELLULITIS
     Dosage: ?          QUANTITY:20 TABLET(S);?
     Route: 048

REACTIONS (6)
  - Fall [None]
  - Myalgia [None]
  - Heart rate increased [None]
  - Arthralgia [None]
  - Hypoglycaemia [None]
  - Musculoskeletal pain [None]

NARRATIVE: CASE EVENT DATE: 20171107
